FAERS Safety Report 4457325-3 (Version None)
Quarter: 2004Q3

REPORT INFORMATION
  Report Type: 
  Country: None (occurrence: None)
  Receive Date: 20040921
  Receipt Date: 20040903
  Transmission Date: 20050211
  Serious: Yes (Other)
  Sender: FDA-Public Use
  Company Number: B0343105A

PATIENT
  Age: 37 Year
  Sex: Male

DRUGS (14)
  1. COMBIVIR [Suspect]
     Indication: HIV INFECTION
     Dosage: 2 TABLET/PER DAY/ORAL
     Route: 048
     Dates: start: 20030703, end: 20030713
  2. ZIAGEN [Suspect]
     Indication: HIV INFECTION
     Dosage: 600 MG/D
     Dates: start: 20030714, end: 20030728
  3. KALETRA [Suspect]
     Indication: HIV INFECTION
     Dosage: 6 CAPSULE/PER DAY/ORAL
     Route: 048
     Dates: start: 20030401
  4. CLARITHROMYCIN [Suspect]
     Indication: MYCOBACTERIUM AVIUM COMPLEX INFECTION
     Dosage: 400 MG/TWICE PER DAY/ORAL
     Route: 048
     Dates: start: 20030401
  5. ETHAMBUTOL HCL [Suspect]
     Indication: MYCOBACTERIUM AVIUM COMPLEX INFECTION
     Dosage: 750 MG/PER DAY/ORAL
     Route: 048
     Dates: start: 20030401
  6. SPARFLOXACIN TABLET (SPARFLOXACIN) [Suspect]
     Indication: MYCOBACTERIUM AVIUM COMPLEX INFECTION
     Dosage: 300 MG/PER DAY/ORAL
     Route: 048
     Dates: start: 20030401, end: 20040728
  7. CIDOFOVIR (CIDOFOVIR) [Suspect]
     Indication: RETINITIS
     Dosage: 330 MG/1W
     Dates: start: 20030401, end: 20030618
  8. VALGANCYCLOVIR TABLET (VALGANCYCLOVIR) [Suspect]
     Indication: RETINITIS
     Dosage: 900 MG/TWO TIMES PER WEEK/ORAL
     Route: 048
     Dates: start: 20030630
  9. VALGANCYCLOVIR TABLET (VALGANCYCLOVIR) [Suspect]
     Indication: RETINITIS
     Dosage: 900 MG/1W
     Dates: start: 20030717
  10. SEPTRA [Suspect]
     Indication: CEREBRAL TOXOPLASMOSIS
     Dosage: 6 TABLET/PER DAY/ORAL
     Route: 048
     Dates: start: 20030708, end: 20030714
  11. LAMIVUDINE [Concomitant]
  12. STAVUDINE [Concomitant]
  13. PREDONINE [Concomitant]
  14. PENTAMIDINE [Concomitant]

REACTIONS (3)
  - ALANINE AMINOTRANSFERASE INCREASED [None]
  - ASPARTATE AMINOTRANSFERASE INCREASED [None]
  - LIVER DISORDER [None]
